FAERS Safety Report 21557954 (Version 3)
Quarter: 2022Q4

REPORT INFORMATION
  Report Type: Report from Study
  Country: US (occurrence: US)
  Receive Date: 20221106
  Receipt Date: 20221222
  Transmission Date: 20230113
  Serious: Yes (Hospitalization)
  Sender: FDA-Public Use
  Company Number: US-AMGEN-USACT2022190421

PATIENT
  Age: 14 Year
  Sex: Female
  Weight: 52.2 kg

DRUGS (5)
  1. ERENUMAB [Suspect]
     Active Substance: ERENUMAB
     Indication: Migraine
     Dosage: 2 MILLILITER
     Route: 058
     Dates: start: 20220426
  2. AQUAPHOR [Concomitant]
     Active Substance: PETROLATUM
     Dosage: 1 UNK
     Route: 061
     Dates: start: 20090401
  3. NAPROXEN [Concomitant]
     Active Substance: NAPROXEN
     Dosage: 550 MILLIGRAM
     Route: 048
     Dates: start: 20210811
  4. MAXALT [Concomitant]
     Active Substance: RIZATRIPTAN BENZOATE
     Dosage: 10 MILLIGRAM
     Route: 048
     Dates: start: 20210811
  5. VITAMIN D3 [Concomitant]
     Active Substance: CHOLECALCIFEROL
     Dosage: 2000 INTERNATIONAL UNIT
     Route: 048
     Dates: start: 20210811

REACTIONS (1)
  - Appendicolith [Unknown]

NARRATIVE: CASE EVENT DATE: 20221103
